FAERS Safety Report 6965257-1 (Version None)
Quarter: 2010Q3

REPORT INFORMATION
  Report Type: 
  Country: None (occurrence: None)
  Receive Date: 20100903
  Receipt Date: 20100903
  Transmission Date: 20110219
  Serious: Yes (Other)
  Sender: FDA-Public Use
  Company Number: IN-PAR PHARMACEUTICAL, INC-2010SCPR001973

PATIENT

DRUGS (8)
  1. CLONAZEPAM [Suspect]
     Indication: MYOCLONUS
     Dosage: .025 MG, PER DAY
     Dates: start: 20080101, end: 20080101
  2. CLONAZEPAM [Suspect]
     Indication: INSOMNIA
     Dosage: 0.5 MG, PER DAY
     Route: 065
     Dates: start: 20080101
  3. CLONAZEPAM [Suspect]
     Dosage: 0.375 MG, PER DAY
     Route: 065
  4. CLONAZEPAM [Suspect]
     Dosage: 0.25 MG, PER DAY
     Route: 065
     Dates: start: 20090201
  5. LAMOTRIGINE [Suspect]
     Indication: MYOCLONIC EPILEPSY
     Dosage: 150 MG, PER DAY
     Route: 065
     Dates: end: 20070101
  6. LAMOTRIGINE [Suspect]
     Dosage: 175 MG, PR DAY
     Route: 065
     Dates: start: 20070101, end: 20080101
  7. LAMOTRIGINE [Suspect]
     Dosage: 250 MG, QD
     Route: 065
     Dates: start: 20080101
  8. FOLIC ACID [Concomitant]
     Indication: PRODUCT USED FOR UNKNOWN INDICATION
     Dosage: 5 MG, PER DAY
     Route: 065

REACTIONS (2)
  - DRUG EXPOSURE DURING PREGNANCY [None]
  - STILLBIRTH [None]
